FAERS Safety Report 5478604-7 (Version None)
Quarter: 2007Q4

REPORT INFORMATION
  Report Type: 
  Country: None (occurrence: None)
  Receive Date: 20071005
  Receipt Date: 20071003
  Transmission Date: 20080405
  Serious: Yes (Other)
  Sender: FDA-Public Use
  Company Number: GB-SHR-GB-2007-032925

PATIENT
  Age: 50 Year
  Sex: Female
  Weight: 63 kg

DRUGS (2)
  1. MIRENA [Suspect]
     Dosage: 20 A?G/DAY, CONT
     Route: 015
     Dates: start: 20060720
  2. ESTROGEN NOS [Concomitant]
     Route: 062
     Dates: start: 20070701

REACTIONS (4)
  - DIZZINESS [None]
  - HALLUCINATION, OLFACTORY [None]
  - MIGRAINE [None]
  - NAUSEA [None]
